FAERS Safety Report 7809787 (Version 3)
Quarter: 2017Q1

REPORT INFORMATION
  Report Type: Spontaneous
  Country: US (occurrence: US)
  Receive Date: 20110211
  Receipt Date: 20170223
  Transmission Date: 20170429
  Serious: Yes (Death)
  Sender: FDA-Public Use
  Company Number: US-AMGEN-USASP2011008023

PATIENT
  Age: 71 Year
  Sex: Female
  Weight: 53.52 kg

DRUGS (1)
  1. NPLATE [Suspect]
     Active Substance: ROMIPLOSTIM
     Indication: OVARIAN CANCER
     Dosage: 500 MUG, UNK
     Route: 065
     Dates: start: 20100827, end: 20101208

REACTIONS (2)
  - Off label use [Unknown]
  - Ovarian cancer [Fatal]
